FAERS Safety Report 4619235-8 (Version None)
Quarter: 2005Q2

REPORT INFORMATION
  Report Type: 
  Country: None (occurrence: None)
  Receive Date: 20050321
  Receipt Date: 20040928
  Transmission Date: 20051028
  Serious: Yes (Other)
  Sender: FDA-Public Use
  Company Number: 2004-09-1959

PATIENT
  Age: 49 Year
  Sex: Female
  Weight: 57.1532 kg

DRUGS (2)
  1. PEG-INTRON [Suspect]
     Indication: HEPATITIS C
     Dates: start: 20040901
  2. RIBAVIRIN [Suspect]
     Indication: HEPATITIS C
     Dates: start: 20040901

REACTIONS (2)
  - PAIN [None]
  - SUICIDAL IDEATION [None]
